FAERS Safety Report 8807961 (Version 2)
Quarter: 2012Q4

REPORT INFORMATION
  Report Type: 
  Country: US (occurrence: US)
  Receive Date: 20120925
  Receipt Date: 20121227
  Transmission Date: 20130627
  Serious: Yes (Hospitalization)
  Sender: FDA-Public Use
  Company Number: US-PFIZER INC-2012187324

PATIENT
  Sex: Male

DRUGS (11)
  1. SUNITINIB MALATE [Suspect]
     Dosage: 37.5 mg, 1x/day
     Route: 048
     Dates: start: 20120229, end: 20120403
  2. SUNITINIB MALATE [Suspect]
     Dosage: 25 mg, 1x/day
     Route: 048
  3. DASATINIB [Suspect]
     Route: 048
  4. ABIRATERONE ACETATE [Suspect]
     Dosage: 1000 mg, 1x/day
     Route: 048
     Dates: start: 20111108, end: 20120406
  5. ALLOPURINOL [Concomitant]
     Dosage: 300 mg, UNK
     Route: 048
  6. CALCIUM [Concomitant]
     Dosage: 10 mg, Daily
     Route: 048
  7. CRESTOR [Concomitant]
     Dosage: 10 mg, Daily
     Route: 048
  8. LUPRON [Concomitant]
     Dosage: 30 mg, every 3 months
     Route: 030
  9. INDOMETHACIN [Concomitant]
     Dosage: 50 mg, daily PRN
     Route: 048
  10. POTASSIUM [Concomitant]
     Dosage: 20 mEq, daily
     Route: 048
  11. HYDROCHLOROTHIAZIDE WITH TRIAMTERENE [Concomitant]
     Dosage: 50 mg/75 mg, Daily
     Route: 048

REACTIONS (2)
  - Gastritis [Unknown]
  - Pancreatitis [Unknown]
